FAERS Safety Report 7849796-7 (Version None)
Quarter: 2011Q4

REPORT INFORMATION
  Report Type: 
  Country: None (occurrence: None)
  Receive Date: 20111021
  Receipt Date: 20111007
  Transmission Date: 20120403
  Serious: Yes (Other)
  Sender: FDA-Public Use
  Company Number: 2011-2648

PATIENT
  Age: 59 Year
  Sex: Male
  Weight: 81 kg

DRUGS (6)
  1. AMLODIPINE [Concomitant]
  2. LANTUS [Concomitant]
  3. SOMATULINE DEPOT [Suspect]
     Indication: ACROMEGALY
     Dosage: 120MG (120 MG, 1 IN 28 D), INTRAMUSCULAR
     Route: 030
     Dates: start: 20110916, end: 20110916
  4. SOMATULINE DEPOT [Suspect]
     Indication: ACROMEGALY
     Dosage: 120MG (120 MG, 1 IN 28 D), INTRAMUSCULAR
     Route: 030
     Dates: start: 20110630, end: 20110630
  5. METFORMIN HCL [Concomitant]
  6. NOVOLOG [Concomitant]

REACTIONS (2)
  - INJECTION SITE EXTRAVASATION [None]
  - INJECTION SITE PRURITUS [None]
